FAERS Safety Report 11001685 (Version 1)
Quarter: 2015Q2

REPORT INFORMATION
  Report Type: Spontaneous
  Country: CH (occurrence: CH)
  Receive Date: 20150408
  Receipt Date: 20150408
  Transmission Date: 20150821
  Serious: Yes (Death, Hospitalization)
  Sender: FDA-Public Use
  Company Number: PHHY2015CH041026

PATIENT
  Age: 33 Year
  Sex: Male

DRUGS (1)
  1. VORICONAZOLE. [Suspect]
     Active Substance: VORICONAZOLE
     Indication: ASPERGILLUS INFECTION
     Dosage: 320 MG, Q12H
     Route: 042

REACTIONS (5)
  - Septic shock [Fatal]
  - Cell death [Unknown]
  - Multi-organ failure [Fatal]
  - Hepatotoxicity [Unknown]
  - Cholestasis [Unknown]
